FAERS Safety Report 25475900 (Version 1)
Quarter: 2025Q2

REPORT INFORMATION
  Report Type: Spontaneous
  Country: CA (occurrence: CA)
  Receive Date: 20250625
  Receipt Date: 20250625
  Transmission Date: 20250717
  Serious: Yes (Hospitalization, Other)
  Sender: ABBVIE
  Company Number: CA-LUNDBECK-DKLU4015973

PATIENT
  Age: 55 Year

DRUGS (14)
  1. CITALOPRAM [Suspect]
     Active Substance: CITALOPRAM
     Indication: Obsessive-compulsive disorder
     Route: 048
  2. CITALOPRAM [Suspect]
     Active Substance: CITALOPRAM
     Indication: Obsessive-compulsive disorder
     Dosage: 40 MILLIGRAM
     Route: 048
  3. ZOPICLONE [Suspect]
     Active Substance: ZOPICLONE
     Indication: Obsessive-compulsive disorder
     Dosage: 7.5 MILLIGRAM
     Route: 065
  4. ZOPICLONE [Suspect]
     Active Substance: ZOPICLONE
     Indication: Obsessive-compulsive disorder
     Route: 065
  5. DULOXETINE [Suspect]
     Active Substance: DULOXETINE
     Indication: Obsessive-compulsive disorder
     Dosage: 120 MILLIGRAM
  6. DULOXETINE [Suspect]
     Active Substance: DULOXETINE
     Indication: Obsessive-compulsive disorder
     Route: 065
  7. BUPRENORPHINE [Suspect]
     Active Substance: BUPRENORPHINE
     Indication: Back pain
     Route: 065
  8. QUETIAPINE FUMARATE [Suspect]
     Active Substance: QUETIAPINE FUMARATE
     Indication: Mixed anxiety and depressive disorder
     Dosage: 400 MILLIGRAM
     Route: 065
  9. QUETIAPINE FUMARATE [Suspect]
     Active Substance: QUETIAPINE FUMARATE
     Indication: Mixed anxiety and depressive disorder
     Route: 065
  10. NALOXONE [Suspect]
     Active Substance: NALOXONE
     Indication: Back pain
     Route: 065
  11. MIRTAZAPINE [Suspect]
     Active Substance: MIRTAZAPINE
     Indication: Mixed anxiety and depressive disorder
     Route: 065
  12. MIRTAZAPINE [Suspect]
     Active Substance: MIRTAZAPINE
     Indication: Mixed anxiety and depressive disorder
     Dosage: 30 MILLIGRAM
     Route: 065
  13. ARIPIPRAZOLE [Suspect]
     Active Substance: ARIPIPRAZOLE
     Indication: Obsessive-compulsive disorder
     Route: 065
  14. ARIPIPRAZOLE [Suspect]
     Active Substance: ARIPIPRAZOLE
     Indication: Obsessive-compulsive disorder
     Dosage: 10 MILLIGRAM
     Route: 065

REACTIONS (12)
  - Acute kidney injury [Recovered/Resolved]
  - Glabellar reflex abnormal [Recovered/Resolved]
  - Gait disturbance [Recovered/Resolved]
  - Confusional state [Recovered/Resolved]
  - Delirium [Recovered/Resolved]
  - Dementia [Recovered/Resolved]
  - Rhabdomyolysis [Recovered/Resolved]
  - Somnolence [Recovered/Resolved]
  - Memory impairment [Recovered/Resolved]
  - Loss of personal independence in daily activities [Recovered/Resolved]
  - Cognitive disorder [Recovered/Resolved]
  - Overdose [Recovered/Resolved]
